FAERS Safety Report 7910035 (Version 14)
Quarter: 2021Q1

REPORT INFORMATION
  Report Type: Spontaneous
  Country: US (occurrence: US)
  Receive Date: 20110421
  Receipt Date: 20210215
  Transmission Date: 20210420
  Serious: Yes (Hospitalization, Other)
  Sender: FDA-Public Use
  Company Number: US-009507513-1104USA01379

PATIENT
  Sex: Female
  Weight: 61.69 kg

DRUGS (13)
  1. FOSAMAX [Suspect]
     Active Substance: ALENDRONATE SODIUM
     Indication: OSTEOPENIA
     Dosage: 70 MG, QW
     Route: 048
     Dates: start: 20021126, end: 20090211
  2. PREMARIN [Concomitant]
     Active Substance: ESTROGENS, CONJUGATED
     Dosage: UNK
     Dates: end: 201105
  3. ROFECOXIB [Concomitant]
     Active Substance: ROFECOXIB
     Indication: OSTEOARTHRITIS
  4. VITAMIN D (UNSPECIFIED) [Concomitant]
     Active Substance: VITAMIN D NOS
     Dosage: UNK
  5. NIACIN. [Concomitant]
     Active Substance: NIACIN
     Dates: start: 1991
  6. FOSAMAX [Suspect]
     Active Substance: ALENDRONATE SODIUM
     Indication: OSTEOPOROSIS PROPHYLAXIS
     Dosage: 10 MG, QD
     Route: 048
     Dates: start: 19990816, end: 20090921
  7. FORTEO [Suspect]
     Active Substance: TERIPARATIDE
     Indication: OSTEOPOROSIS
     Dosage: 20 MICROGRAM, QD, VIA PRE?FILLED PEN
     Dates: start: 20101001
  8. NIACIN. [Concomitant]
     Active Substance: NIACIN
     Dates: start: 1991
  9. ROFECOXIB [Concomitant]
     Active Substance: ROFECOXIB
     Indication: OSTEOARTHRITIS
     Route: 048
  10. VITAMINS (UNSPECIFIED) [Concomitant]
     Active Substance: VITAMINS
     Dosage: UNK
  11. ALENDRONATE SODIUM. [Suspect]
     Active Substance: ALENDRONATE SODIUM
     Dosage: 70 MG, UNK
     Dates: start: 20090105, end: 20100623
  12. CALCIUM (UNSPECIFIED) [Concomitant]
     Active Substance: CALCIUM
     Dosage: UNK
  13. FISH OIL [Concomitant]
     Active Substance: FISH OIL
     Dates: start: 1996

REACTIONS (52)
  - Fall [Recovered/Resolved]
  - Mucinous breast carcinoma [Unknown]
  - Gallbladder disorder [Unknown]
  - Vertebral artery stenosis [Unknown]
  - Femur fracture [Unknown]
  - Muscle spasms [Unknown]
  - Gingival disorder [Unknown]
  - Seasonal allergy [Unknown]
  - Dermatitis contact [Unknown]
  - Elastofibroma [Unknown]
  - Pain in extremity [Unknown]
  - Haematuria [Unknown]
  - Anaemia [Unknown]
  - Tonsillar disorder [Unknown]
  - Acute sinusitis [Unknown]
  - Neck pain [Unknown]
  - Intervertebral disc degeneration [Unknown]
  - Cyst rupture [Unknown]
  - Punctate keratosis [Unknown]
  - Osteoarthritis [Unknown]
  - Body height decreased [Unknown]
  - Bone cyst [Unknown]
  - Asthma [Unknown]
  - Seborrhoeic keratosis [Not Recovered/Not Resolved]
  - Spinal compression fracture [Unknown]
  - Cerebellar stroke [Unknown]
  - Hyperlipidaemia [Unknown]
  - Ankle fracture [Unknown]
  - Lipoma [Unknown]
  - Lip neoplasm [Unknown]
  - Hypertension [Unknown]
  - Renal failure [Unknown]
  - Aphthous ulcer [Unknown]
  - Fatigue [Unknown]
  - Colon adenoma [Unknown]
  - Urethral dilatation [Unknown]
  - Back pain [Unknown]
  - Femur fracture [Unknown]
  - Loose tooth [Unknown]
  - Bronchitis [Unknown]
  - Acne [Unknown]
  - Arthropod bite [Unknown]
  - Vertebral artery occlusion [Unknown]
  - Radius fracture [Unknown]
  - Spinal disorder [Unknown]
  - Fall [Unknown]
  - Eye allergy [Unknown]
  - Cyst [Unknown]
  - Periorbital cellulitis [Unknown]
  - Cerebrovascular accident [Unknown]
  - Low turnover osteopathy [Unknown]
  - Varicella [Unknown]

NARRATIVE: CASE EVENT DATE: 2001
